FAERS Safety Report 7248972-4 (Version None)
Quarter: 2011Q1

REPORT INFORMATION
  Report Type: 
  Country: None (occurrence: None)
  Receive Date: 20110128
  Receipt Date: 20110117
  Transmission Date: 20110831
  Serious: Yes (Hospitalization)
  Sender: FDA-Public Use
  Company Number: PHHY2011NL03588

PATIENT
  Age: 41 Year
  Sex: Male

DRUGS (11)
  1. CLOZAPINE [Suspect]
     Dosage: 600 MG
  2. CLOZAPINE [Suspect]
     Dosage: 500 MG
  3. HALOPERIDOL [Concomitant]
     Dosage: 05 MG
  4. IRON SUPPLEMENTS [Concomitant]
  5. PIPAMPERONE [Concomitant]
     Dosage: 160 MG
  6. LORAZEPAM [Concomitant]
     Dosage: 02 MG
  7. RISPERIDONE [Concomitant]
     Dosage: 600 MG
  8. DIAZEPAM [Concomitant]
     Dosage: 10 MG
  9. CLOZAPINE [Suspect]
     Indication: SCHIZOPHRENIA
     Dosage: 500 MG
  10. PIPAMPERONE [Concomitant]
     Dosage: 120 MG
  11. LORAZEPAM [Concomitant]
     Dosage: 04 MG

REACTIONS (12)
  - GASTRITIS [None]
  - THROMBOCYTOSIS [None]
  - C-REACTIVE PROTEIN INCREASED [None]
  - ANTIPSYCHOTIC DRUG LEVEL INCREASED [None]
  - PNEUMONIA BACTERIAL [None]
  - NORMOCHROMIC NORMOCYTIC ANAEMIA [None]
  - HAEMOGLOBIN DECREASED [None]
  - LIVER DISORDER [None]
  - PLEURAL EFFUSION [None]
  - HELICOBACTER INFECTION [None]
  - SEDATION [None]
  - BODY TEMPERATURE INCREASED [None]
